FAERS Safety Report 5632975-7 (Version None)
Quarter: 2008Q1

REPORT INFORMATION
  Report Type: 
  Country: None (occurrence: None)
  Receive Date: 20080214
  Receipt Date: 20080201
  Transmission Date: 20080703
  Serious: Yes (Other)
  Sender: FDA-Public Use
  Company Number: S07-PRT-06129-01

PATIENT
  Age: 70 Year
  Sex: Female
  Weight: 65 kg

DRUGS (4)
  1. MEMANTINE HCL [Suspect]
     Indication: DEMENTIA ALZHEIMER'S TYPE
     Dosage: 10 MG QD PO
     Route: 048
     Dates: start: 20070901, end: 20071101
  2. ESCITALOPRAM [Concomitant]
  3. LEXOTAN (BROMAZEPAM) [Concomitant]
  4. SODIUM DIVALPROATE (VALPROATE SEMISODIUM) [Concomitant]

REACTIONS (1)
  - MANIA [None]
